FAERS Safety Report 8413745-3 (Version None)
Quarter: 2012Q2

REPORT INFORMATION
  Report Type: 
  Country: None (occurrence: None)
  Receive Date: 20120605
  Receipt Date: 20120523
  Transmission Date: 20120825
  Serious: No
  Sender: FDA-Public Use
  Company Number: US-ASTRAZENECA-2011SE65174

PATIENT
  Age: 49 Year
  Sex: Female

DRUGS (4)
  1. SEROQUEL XR [Suspect]
     Indication: DEPRESSION
     Route: 048
  2. NEXIUM [Suspect]
     Route: 048
  3. SEROQUEL XR [Suspect]
     Route: 048
  4. SEROQUEL XR [Suspect]
     Route: 048

REACTIONS (7)
  - MENTAL DISORDER [None]
  - GASTRIC DISORDER [None]
  - DYSPEPSIA [None]
  - INSOMNIA [None]
  - DRUG DOSE OMISSION [None]
  - ADVERSE EVENT [None]
  - TACHYPHRENIA [None]
